FAERS Safety Report 19273648 (Version 1)
Quarter: 2021Q2

REPORT INFORMATION
  Report Type: Spontaneous
  Country: TR (occurrence: TR)
  Receive Date: 20210519
  Receipt Date: 20210519
  Transmission Date: 20210717
  Serious: Yes (Other)
  Sender: FDA-Public Use
  Company Number: TR-CELLTRION INC.-2021TR006568

PATIENT

DRUGS (10)
  1. METHYLPREDNISOLONE. [Concomitant]
     Active Substance: METHYLPREDNISOLONE
     Dosage: TAPERED DOWN
  2. INFLIXIMAB (UNKNOWN) [Suspect]
     Active Substance: INFLIXIMAB
     Dosage: SECOND INFUSION 13 DAYS AFTER THE FIRST
  3. INFLIXIMAB (UNKNOWN) [Suspect]
     Active Substance: INFLIXIMAB
     Dosage: MAINTENANCE TREATMENT EVERY 8 WEEKS (FOR THE PAST 5 YEARS)
  4. INFLIXIMAB (UNKNOWN) [Suspect]
     Active Substance: INFLIXIMAB
     Indication: PUSTULAR PSORIASIS
     Dosage: 300 MG (5 MG/KG) AT 30 WEEKS GESTATION (1ST INFUSION)
  5. INFLIXIMAB (UNKNOWN) [Suspect]
     Active Substance: INFLIXIMAB
     Dosage: 3RD INFUSION 8 WEEKS AFTER THE SECOND DOSE
  6. METHYLPREDNISOLONE. [Concomitant]
     Active Substance: METHYLPREDNISOLONE
     Dosage: 2 MG/KG, DAILY
  7. ISONIAZID. [Concomitant]
     Active Substance: ISONIAZID
     Indication: TUBERCULOSIS
     Dosage: 300 MG ONCE DAILY
  8. METHYLPREDNISOLONE. [Concomitant]
     Active Substance: METHYLPREDNISOLONE
     Indication: PUSTULAR PSORIASIS
     Dosage: 1.5 MG/KG ONCE DAILY
  9. METHYLPREDNISOLONE. [Concomitant]
     Active Substance: METHYLPREDNISOLONE
     Dosage: INCREASE TO 2.5 MG/KG ONCE DAILY ON THE 10TH DAY OF TREATMENT
  10. METHYLPREDNISOLONE. [Concomitant]
     Active Substance: METHYLPREDNISOLONE
     Dosage: 1.5 MG/KG ONCE DAILY

REACTIONS (7)
  - Treatment delayed [Unknown]
  - Drug effective for unapproved indication [Unknown]
  - Maternal exposure during pregnancy [Unknown]
  - Premature delivery [Unknown]
  - Foetal growth restriction [Unknown]
  - Oral herpes [Recovered/Resolved]
  - Off label use [Unknown]
